FAERS Safety Report 9877202 (Version 1)
Quarter: 2014Q1

REPORT INFORMATION
  Report Type: Spontaneous
  Country: US (occurrence: US)
  Receive Date: 20140206
  Receipt Date: 20140206
  Transmission Date: 20141002
  Serious: Yes (Other)
  Sender: FDA-Public Use
  Company Number: US-JNJFOC-20140201112

PATIENT
  Sex: Female
  Weight: 111.13 kg

DRUGS (4)
  1. TOPAMAX [Suspect]
     Indication: PRODUCT USED FOR UNKNOWN INDICATION
     Route: 048
  2. SYNTHROID [Concomitant]
     Indication: HYPOTHYROIDISM
     Route: 065
  3. MORPHINE SULPHATE [Concomitant]
     Indication: ARTHRALGIA
     Route: 065
  4. CLONAZEPAM [Concomitant]
     Indication: TREMOR
     Route: 065

REACTIONS (1)
  - Gastric bypass [Unknown]
